FAERS Safety Report 13226165 (Version 1)
Quarter: 2017Q1

REPORT INFORMATION
  Report Type: Spontaneous
  Country: IT (occurrence: IT)
  Receive Date: 20170213
  Receipt Date: 20170213
  Transmission Date: 20170428
  Serious: Yes (Other)
  Sender: FDA-Public Use
  Company Number: IT-TEVA-739580ACC

PATIENT
  Age: 72 Year
  Sex: Male
  Weight: 103 kg

DRUGS (2)
  1. PACLITAXEL TEVA - 6 MG/ML CONCENTRATO PER SOLUZIONE PER INFUSIONE [Suspect]
     Active Substance: PACLITAXEL
     Indication: NEOPLASM PROSTATE
     Dosage: 112 MG CYCLICAL
     Route: 042
     Dates: start: 20150527, end: 20170201
  2. CARBOPLATINO TEVA -  10 MG/ML [Concomitant]
     Indication: NEOPLASM PROSTATE
     Dosage: 135 MG
     Dates: start: 20150527, end: 20170201

REACTIONS (3)
  - Tremor [Recovered/Resolved]
  - Vomiting [Recovered/Resolved]
  - Hyperpyrexia [Recovered/Resolved]

NARRATIVE: CASE EVENT DATE: 20170201
